FAERS Safety Report 9995551 (Version 1)
Quarter: 2014Q1

REPORT INFORMATION
  Report Type: Report from Study
  Country: FR (occurrence: FR)
  Receive Date: 20140311
  Receipt Date: 20140311
  Transmission Date: 20141002
  Serious: Yes (Hospitalization, Other)
  Sender: FDA-Public Use
  Company Number: FR-ROCHE-1357349

PATIENT
  Sex: Female

DRUGS (28)
  1. RITUXIMAB [Suspect]
     Indication: RHEUMATOID ARTHRITIS
     Route: 042
     Dates: start: 20090427
  2. RITUXIMAB [Suspect]
     Route: 042
     Dates: start: 20090511
  3. RITUXIMAB [Suspect]
     Route: 042
     Dates: start: 20090928
  4. RITUXIMAB [Suspect]
     Route: 042
     Dates: start: 20091014
  5. RITUXIMAB [Suspect]
     Route: 042
     Dates: start: 20100414
  6. RITUXIMAB [Suspect]
     Route: 042
     Dates: start: 20100428
  7. RITUXIMAB [Suspect]
     Route: 042
     Dates: start: 20101028
  8. RITUXIMAB [Suspect]
     Route: 042
     Dates: start: 20101112
  9. RITUXIMAB [Suspect]
     Route: 042
     Dates: start: 20110509
  10. RITUXIMAB [Suspect]
     Route: 042
     Dates: start: 20110520
  11. RITUXIMAB [Suspect]
     Route: 042
     Dates: start: 20120213
  12. RITUXIMAB [Suspect]
     Route: 042
     Dates: start: 20130227
  13. RITUXIMAB [Suspect]
     Route: 042
     Dates: start: 20120914
  14. METHOTREXATE [Concomitant]
     Dosage: 12.5MG/WEEK
     Route: 065
     Dates: start: 20090427
  15. METHOTREXATE [Concomitant]
     Route: 065
     Dates: start: 20090511
  16. METHOTREXATE [Concomitant]
     Dosage: 12.5MG/WEEK
     Route: 065
     Dates: start: 20090928
  17. METHOTREXATE [Concomitant]
     Route: 065
     Dates: start: 20091014
  18. METHOTREXATE [Concomitant]
     Dosage: 7.5MG/WEEK
     Route: 065
     Dates: start: 20100414
  19. METHOTREXATE [Concomitant]
     Dosage: 7.5MG/WEEK
     Route: 065
     Dates: start: 20100428
  20. METHOTREXATE [Concomitant]
     Dosage: 7.5MG/WEEK
     Route: 065
     Dates: start: 20101028
  21. METHOTREXATE [Concomitant]
     Route: 065
     Dates: start: 20101012
  22. METHOTREXATE [Concomitant]
     Dosage: 7.5MG/WEEK
     Route: 065
     Dates: start: 20110509
  23. METHOTREXATE [Concomitant]
     Dosage: 7.5MG/WEEK
     Route: 065
     Dates: start: 20110520
  24. METHOTREXATE [Concomitant]
     Dosage: 7.5MG/WEEK
     Route: 065
     Dates: start: 20120213
  25. METHOTREXATE [Concomitant]
     Dosage: 7.5MG/WEEK
     Route: 065
     Dates: start: 20120227
  26. METHOTREXATE [Concomitant]
     Dosage: 7.5MG/WEEK
     Route: 065
     Dates: start: 20120914
  27. CORTANCYL [Concomitant]
     Route: 065
     Dates: start: 20120213
  28. CORTANCYL [Concomitant]
     Route: 065
     Dates: start: 20120227

REACTIONS (10)
  - Lung adenocarcinoma [Not Recovered/Not Resolved]
  - Loss of consciousness [Recovered/Resolved]
  - Pulmonary embolism [Recovered/Resolved]
  - Cataract [Recovered/Resolved]
  - Malaise [Recovered/Resolved]
  - Femoral neck fracture [Recovered/Resolved]
  - Haematoma [Recovered/Resolved]
  - Lung cancer metastatic [Not Recovered/Not Resolved]
  - Bronchitis [Recovered/Resolved]
  - Anosmia [Not Recovered/Not Resolved]
